FAERS Safety Report 6641446-0 (Version None)
Quarter: 2010Q1

REPORT INFORMATION
  Report Type: 
  Country: None (occurrence: None)
  Receive Date: 20100318
  Receipt Date: 20100308
  Transmission Date: 20100710
  Serious: Yes (Hospitalization)
  Sender: FDA-Public Use
  Company Number: FR-ABBOTT-09P-056-0569534-00

PATIENT
  Sex: Female

DRUGS (2)
  1. MICROPAKINE GRANULE [Suspect]
     Indication: EPILEPSY
     Dosage: 2000MG ORAL/ONCE
     Dates: start: 20090410, end: 20090415
  2. MICROPAKINE GRANULE [Suspect]
     Route: 048
     Dates: start: 20090416

REACTIONS (5)
  - ACCIDENTAL OVERDOSE [None]
  - ALTERED STATE OF CONSCIOUSNESS [None]
  - DRUG DISPENSING ERROR [None]
  - INCORRECT DOSE ADMINISTERED [None]
  - VOMITING [None]
